FAERS Safety Report 18425376 (Version 1)
Quarter: 2020Q4

REPORT INFORMATION
  Report Type: Spontaneous
  Country: US (occurrence: US)
  Receive Date: 20201024
  Receipt Date: 20201024
  Transmission Date: 20210114
  Serious: Yes (Life-Threatening, Hospitalization)
  Sender: FDA-Public Use
  Company Number: None

PATIENT
  Age: 74 Year
  Sex: Female
  Weight: 63 kg

DRUGS (2)
  1. KEYTRUDA [Suspect]
     Active Substance: PEMBROLIZUMAB
     Indication: COLON CANCER METASTATIC
     Dosage: ?          OTHER FREQUENCY:EVERY 3 WEEKS;OTHER ROUTE:INFUSION?
     Dates: start: 20201015
  2. ATORVASTATIN [Concomitant]
     Active Substance: ATORVASTATIN

REACTIONS (8)
  - Chromaturia [None]
  - Pyrexia [None]
  - Pulmonary embolism [None]
  - Pharyngeal swelling [None]
  - Feeling cold [None]
  - Haemoglobin decreased [None]
  - Haemoptysis [None]
  - White blood cell count decreased [None]

NARRATIVE: CASE EVENT DATE: 20201015
